FAERS Safety Report 12928573 (Version 1)
Quarter: 2016Q4

REPORT INFORMATION
  Report Type: Report from Study
  Country: US (occurrence: US)
  Receive Date: 20161110
  Receipt Date: 20161110
  Transmission Date: 20170207
  Serious: Yes (Hospitalization)
  Sender: FDA-Public Use
  Company Number: US-ACCORD-045351

PATIENT
  Age: 24 Year
  Sex: Male

DRUGS (6)
  1. AMLODIPINE [Concomitant]
     Active Substance: AMLODIPINE BESYLATE
     Dosage: BEFORE THE 72-H PERIOD, RECEIVED MULTIPLE DOSES OF AMLODIPINE THROUGHOUT THE FOUR ADMISSIONS
  2. CLONIDINE. [Concomitant]
     Active Substance: CLONIDINE
     Indication: RILEY-DAY SYNDROME
     Dosage: ALSO RECEIVED CLONIDINE 2.4 MG
  3. DEXMEDETOMIDINE. [Suspect]
     Active Substance: DEXMEDETOMIDINE
     Indication: RILEY-DAY SYNDROME
     Dosage: STARTING RATE OF 0.6 MCG/KG/H?AVERAGE RATE OF 0.85 MCG/KG/H ?MAXIMUM RATE AT 1.4 MCG/KG/H
     Route: 042
  4. DIAZEPAM. [Suspect]
     Active Substance: DIAZEPAM
     Indication: RILEY-DAY SYNDROME
     Dosage: ALSO RECEIVED 45 MG
     Route: 042
  5. LABETALOL [Concomitant]
     Active Substance: LABETALOL\LABETALOL HYDROCHLORIDE
     Dosage: BEFORE THE 72-H PERIOD, RECEIVED MULTIPLE DOSES OF LABETALOL THROUGHOUT THE FOUR ADMISSIONS
  6. CLONAZEPAM. [Concomitant]
     Active Substance: CLONAZEPAM
     Indication: RILEY-DAY SYNDROME

REACTIONS (4)
  - Hypotension [Unknown]
  - Bradycardia [Unknown]
  - Off label use [Unknown]
  - Sedation [Unknown]
